FAERS Safety Report 14007851 (Version 2)
Quarter: 2017Q4

REPORT INFORMATION
  Report Type: Report from Study
  Country: US (occurrence: US)
  Receive Date: 20170925
  Receipt Date: 20171218
  Transmission Date: 20180321
  Serious: No
  Sender: FDA-Public Use
  Company Number: US-009507513-1709USA007128

PATIENT
  Sex: Female
  Weight: 59.86 kg

DRUGS (2)
  1. IMPLANON [Suspect]
     Active Substance: ETONOGESTREL
     Dosage: ONE ROD (68MG) PER 3 YEARS
     Route: 059
     Dates: start: 20170905, end: 20170905
  2. IMPLANON [Suspect]
     Active Substance: ETONOGESTREL
     Dosage: ONE ROD (68MG) PER 3 YEARS
     Route: 059
     Dates: start: 20170905

REACTIONS (3)
  - Product quality issue [Unknown]
  - Complication of device insertion [Recovered/Resolved]
  - No adverse event [Unknown]

NARRATIVE: CASE EVENT DATE: 20170905
